FAERS Safety Report 11054554 (Version 1)
Quarter: 2015Q2

REPORT INFORMATION
  Report Type: Report from Study
  Country: CA (occurrence: CA)
  Receive Date: 20150422
  Receipt Date: 20150422
  Transmission Date: 20150821
  Serious: Yes (Death, Hospitalization)
  Sender: FDA-Public Use
  Company Number: CA-AMGEN-CANSL2015037260

PATIENT
  Age: 84 Year
  Sex: Female

DRUGS (1)
  1. PROLIA [Suspect]
     Active Substance: DENOSUMAB
     Indication: OSTEOPOROSIS
     Dosage: 60 MG/ML, UNK
     Route: 065
     Dates: start: 20110816

REACTIONS (4)
  - Hospitalisation [Unknown]
  - Ill-defined disorder [Fatal]
  - Gastrointestinal disorder [Unknown]
  - Lung disorder [Unknown]

NARRATIVE: CASE EVENT DATE: 201501
